FAERS Safety Report 7655931-6 (Version None)
Quarter: 2011Q3

REPORT INFORMATION
  Report Type: 
  Country: None (occurrence: None)
  Receive Date: 20110804
  Receipt Date: 20110802
  Transmission Date: 20111222
  Serious: No
  Sender: FDA-Public Use
  Company Number: US-TEVA-293521USA

PATIENT
  Sex: Female

DRUGS (2)
  1. DEPO SHOT [Concomitant]
     Indication: CONTRACEPTION
     Dates: start: 20110503
  2. PLAN B ONE-STEP [Suspect]
     Indication: POST COITAL CONTRACEPTION
     Dosage: 1.5 MILLIGRAM;
     Route: 048
     Dates: start: 20110601, end: 20110601

REACTIONS (4)
  - ABDOMINAL PAIN UPPER [None]
  - HOT FLUSH [None]
  - MENSTRUATION IRREGULAR [None]
  - MENORRHAGIA [None]
